FAERS Safety Report 11344191 (Version 1)
Quarter: 2015Q3

REPORT INFORMATION
  Report Type: Spontaneous
  Country: US (occurrence: US)
  Receive Date: 20150806
  Receipt Date: 20150806
  Transmission Date: 20151125
  Serious: No
  Sender: FDA-Public Use
  Company Number: US-SHIRE-US201509785

PATIENT
  Sex: Male
  Weight: 64.4 kg

DRUGS (1)
  1. VYVANSE [Suspect]
     Active Substance: LISDEXAMFETAMINE DIMESYLATE
     Indication: ATTENTION DEFICIT/HYPERACTIVITY DISORDER
     Dosage: 30 MG, UNKNOWN
     Route: 048
     Dates: start: 20150714

REACTIONS (3)
  - Pyrexia [Unknown]
  - Pain [Unknown]
  - Dizziness [Unknown]

NARRATIVE: CASE EVENT DATE: 2015
